FAERS Safety Report 6906937-3 (Version None)
Quarter: 2010Q3

REPORT INFORMATION
  Report Type: 
  Country: None (occurrence: None)
  Receive Date: 20100804
  Receipt Date: 20100705
  Transmission Date: 20110219
  Serious: Yes (Other)
  Sender: FDA-Public Use
  Company Number: PHHY2010CA45749

PATIENT
  Sex: Male

DRUGS (2)
  1. SANDOSTATIN LAR [Suspect]
     Indication: HEPATIC NEOPLASM MALIGNANT
     Dosage: 60 MG, BIW
     Route: 030
     Dates: start: 20061001
  2. SANDOSTATIN LAR [Suspect]
     Indication: CARCINOID SYNDROME

REACTIONS (5)
  - COUGH [None]
  - DYSPNOEA [None]
  - HEADACHE [None]
  - ORTHOPNOEA [None]
  - POOR QUALITY SLEEP [None]
